FAERS Safety Report 24837871 (Version 2)
Quarter: 2025Q1

REPORT INFORMATION
  Report Type: Spontaneous
  Country: SI (occurrence: SI)
  Receive Date: 20250113
  Receipt Date: 20250116
  Transmission Date: 20250409
  Serious: Yes (Hospitalization)
  Sender: SANDOZ
  Company Number: SI-SAMSUNG BIOEPIS-SB-2024-39683

PATIENT
  Age: 34 Year
  Sex: Female
  Weight: 93 kg

DRUGS (5)
  1. ADALIMUMAB [Suspect]
     Active Substance: ADALIMUMAB
     Indication: Hidradenitis
     Route: 065
  2. ADALIMUMAB [Suspect]
     Active Substance: ADALIMUMAB
     Route: 065
  3. ETONOGESTREL AND ETHINYL ESTRADIOL [Suspect]
     Active Substance: ETHINYL ESTRADIOL\ETONOGESTREL
     Indication: Contraception
     Route: 065
  4. CLINDAMYCIN ABM [Concomitant]
     Indication: Hidradenitis
     Route: 065
  5. Doxycycline ferein [Concomitant]
     Indication: Hidradenitis
     Route: 065

REACTIONS (5)
  - Hepatic steatosis [Unknown]
  - Pancreatitis [Unknown]
  - Hypertriglyceridaemia [Unknown]
  - Pancreatitis necrotising [Unknown]
  - Atelectasis [Unknown]
